FAERS Safety Report 15298530 (Version 1)
Quarter: 2018Q3

REPORT INFORMATION
  Report Type: Spontaneous
  Country: JP (occurrence: JP)
  Receive Date: 20180820
  Receipt Date: 20180820
  Transmission Date: 20181010
  Serious: Yes (Death, Other)
  Sender: FDA-Public Use
  Company Number: JP-NAPPMUNDI-GBR-2017-0046999

PATIENT
  Age: 71 Year
  Sex: Male

DRUGS (12)
  1. SERENACE [Concomitant]
     Active Substance: HALOPERIDOL
     Indication: NAUSEA
     Dosage: 5 MG, DAILY
     Dates: start: 20161029, end: 20161121
  2. PRIMPERAN [Concomitant]
     Active Substance: METOCLOPRAMIDE HYDROCHLORIDE
     Indication: NAUSEA
     Dosage: 10 MG, DAILY
     Route: 042
     Dates: start: 20161016, end: 20161128
  3. DECADRON [Concomitant]
     Active Substance: DEXAMETHASONE
     Indication: MALAISE
     Dosage: 4 MG, DAILY
     Route: 048
     Dates: start: 20160824, end: 20161025
  4. DUROTEP [Concomitant]
     Active Substance: FENTANYL
     Indication: CANCER PAIN
     Dosage: 2.1 MG, DAILY
     Dates: start: 20161019
  5. MIDAZOLAM [Concomitant]
     Active Substance: MIDAZOLAM HYDROCHLORIDE
     Indication: MALAISE
  6. OXIFAST [Suspect]
     Active Substance: OXYCODONE
     Dosage: 24 MG, DAILY
     Route: 058
     Dates: start: 20161019, end: 20161026
  7. OXIFAST [Suspect]
     Active Substance: OXYCODONE
     Indication: CANCER PAIN
     Dosage: 40 MG, DAILY
     Route: 041
     Dates: start: 20161030, end: 20161128
  8. OXIFAST [Suspect]
     Active Substance: OXYCODONE
     Dosage: 36 MG, DAILY
     Route: 058
     Dates: start: 20161027, end: 20161029
  9. MIDAZOLAM [Concomitant]
     Active Substance: MIDAZOLAM HYDROCHLORIDE
     Indication: NAUSEA
     Dosage: 10 MG, DAILY
     Dates: start: 20161122
  10. NOVAMIN                            /00013301/ [Concomitant]
     Active Substance: PROCHLORPERAZINE
     Indication: NAUSEA
     Dosage: 5 MG, DAILY
     Dates: start: 20160930, end: 20161005
  11. NOVAMIN                            /00013301/ [Concomitant]
     Active Substance: PROCHLORPERAZINE
     Indication: MALAISE
  12. NAUZELIN [Concomitant]
     Active Substance: DOMPERIDONE
     Indication: NAUSEA
     Dosage: 60 MG, DAILY
     Dates: start: 20161009, end: 20161122

REACTIONS (2)
  - Pancreatic carcinoma [Fatal]
  - Drug dependence [Recovering/Resolving]

NARRATIVE: CASE EVENT DATE: 20161030
